FAERS Safety Report 9685143 (Version 1)
Quarter: 2013Q4

REPORT INFORMATION
  Report Type: Spontaneous
  Country: US (occurrence: None)
  Receive Date: 20131111
  Receipt Date: 20131111
  Transmission Date: 20140711
  Serious: Yes (Other)
  Sender: FDA-Public Use
  Company Number: None

PATIENT
  Age: 13 Year
  Sex: Male
  Weight: 47.63 kg

DRUGS (1)
  1. QVAR [Suspect]
     Indication: ASTHMA
     Dosage: ONE PUFF TWICE DAILY INHALATION
     Route: 055
     Dates: start: 20131012, end: 20131108

REACTIONS (5)
  - Oropharyngeal pain [None]
  - Crying [None]
  - Suicidal ideation [None]
  - Aggression [None]
  - Urticaria [None]
